FAERS Safety Report 10934724 (Version 2)
Quarter: 2015Q2

REPORT INFORMATION
  Report Type: Spontaneous
  Country: US (occurrence: US)
  Receive Date: 20150320
  Receipt Date: 20150617
  Transmission Date: 20150821
  Serious: No
  Sender: FDA-Public Use
  Company Number: US-GALDERMA-US15000704

PATIENT
  Age: 65 Year
  Sex: Female

DRUGS (10)
  1. RESCUE [Concomitant]
     Indication: ASTHMA
  2. FACE VALUE HARMONY PM FACIAL MOISTURE LOTION [Concomitant]
     Indication: DRY SKIN PROPHYLAXIS
     Route: 061
  3. FLUTICASONE HFA AEROSOL INHALER [Concomitant]
     Indication: ASTHMA
  4. OIL OF OLAY COMPLETE [Concomitant]
     Indication: PROPHYLAXIS AGAINST SOLAR RADIATION
     Route: 061
  5. METRONIDAZOLE CREAM (METRONIDAZOLE) 0.75% [Concomitant]
     Active Substance: METRONIDAZOLE
     Indication: ROSACEA
     Dosage: 0.75%
     Route: 061
  6. FISH OIL [Concomitant]
     Active Substance: FISH OIL
     Dosage: 1200MG
  7. PULMICORT TURBUHALER [Concomitant]
     Active Substance: BUDESONIDE
     Indication: ASTHMA
  8. ACIDOPHILUS [Concomitant]
     Active Substance: LACTOBACILLUS ACIDOPHILUS
  9. MIRVASO [Suspect]
     Active Substance: BRIMONIDINE TARTRATE
     Indication: ROSACEA
     Dosage: 0.33%
     Route: 061
     Dates: start: 201411, end: 201411
  10. NATURE BOUNTY D3-2000 [Concomitant]

REACTIONS (1)
  - Erythema [Recovered/Resolved]

NARRATIVE: CASE EVENT DATE: 201411
